FAERS Safety Report 8550184-9 (Version None)
Quarter: 2012Q3

REPORT INFORMATION
  Report Type: 
  Country: None (occurrence: None)
  Receive Date: 20120718
  Receipt Date: 20120712
  Transmission Date: 20120928
  Serious: Yes (Hospitalization)
  Sender: FDA-Public Use
  Company Number: 136553

PATIENT
  Age: 68 Year
  Sex: Male
  Weight: 72 kg

DRUGS (1)
  1. LEUCOVORIN CALCIUM [Suspect]
     Indication: NEOPLASM MALIGNANT
     Dosage: 400MG/M2 INTRAVENOUS DAY 1 EVERY 14 DAYS
     Dates: start: 20120109

REACTIONS (3)
  - HEPATOTOXICITY [None]
  - HYPERTHERMIA [None]
  - FEBRILE NEUTROPENIA [None]
